FAERS Safety Report 4726187-9 (Version None)
Quarter: 2005Q3

REPORT INFORMATION
  Report Type: 
  Country: None (occurrence: None)
  Receive Date: 20050725
  Receipt Date: 20050708
  Transmission Date: 20060218
  Serious: Yes (Other)
  Sender: FDA-Public Use
  Company Number: RENA-11100

PATIENT
  Age: 55 Year
  Sex: Male

DRUGS (20)
  1. RENAGEL [Suspect]
     Indication: HYPERPHOSPHATAEMIA
     Dosage: 1.5 G TID PO
     Route: 048
     Dates: start: 20030618, end: 20040409
  2. RENAGEL [Suspect]
     Indication: HYPERPHOSPHATAEMIA
     Dosage: 0.75 G TID PO
     Route: 048
     Dates: start: 20040519, end: 20040625
  3. RENAGEL [Suspect]
     Indication: HYPERPHOSPHATAEMIA
     Dosage: 0.75 G TID PO
     Route: 048
     Dates: start: 20040813, end: 20041101
  4. RENAGEL [Suspect]
     Indication: HYPERPHOSPHATAEMIA
     Dosage: 0.75 G TID PO
     Route: 048
     Dates: start: 20041201, end: 20050201
  5. RENAGEL [Suspect]
     Indication: HYPERPHOSPHATAEMIA
     Dosage: 0.75 G TID PO
     Route: 048
     Dates: start: 20050301, end: 20050401
  6. EPOGIN [Concomitant]
  7. CALTAN (CALCIUM CARBONATE) [Concomitant]
  8. MUCOSTA [Concomitant]
  9. GASTER [Concomitant]
  10. MIKELAN [Concomitant]
  11. EVIPROSTAT [Concomitant]
  12. LASIX [Concomitant]
  13. ALOSENN [Concomitant]
  14. KETOPROFEN [Concomitant]
  15. SOLON [Concomitant]
  16. ALESION [Concomitant]
  17. DEPAS [Concomitant]
  18. HALCION [Concomitant]
  19. OXAROL (MAXACALCITOL) [Concomitant]
  20. HOCHUUEKKITOU [Concomitant]

REACTIONS (22)
  - ATHEROSCLEROSIS OBLITERANS [None]
  - BACK PAIN [None]
  - BLOOD CHOLESTEROL DECREASED [None]
  - BLOOD CREATINE PHOSPHOKINASE BB INCREASED [None]
  - BLOOD CREATINE PHOSPHOKINASE INCREASED [None]
  - BONE PAIN [None]
  - CALCIUM METABOLISM DISORDER [None]
  - CHILLBLAINS [None]
  - CONDITION AGGRAVATED [None]
  - CONSTIPATION [None]
  - HYPOAESTHESIA [None]
  - ISCHAEMIA [None]
  - MALAISE [None]
  - MYALGIA [None]
  - OCCUPATIONAL PHYSICAL PROBLEM [None]
  - PAIN IN EXTREMITY [None]
  - PERIPHERAL CIRCULATORY FAILURE [None]
  - PHOSPHORUS METABOLISM DISORDER [None]
  - SACRAL PAIN [None]
  - SHOULDER PAIN [None]
  - TEMPOROMANDIBULAR JOINT SYNDROME [None]
  - TENDON DISORDER [None]
